FAERS Safety Report 6830050-7 (Version None)
Quarter: 2010Q3

REPORT INFORMATION
  Report Type: 
  Country: None (occurrence: None)
  Receive Date: 20100711
  Receipt Date: 20100505
  Transmission Date: 20110219
  Serious: No
  Sender: FDA-Public Use
  Company Number: US-ALLERGAN-1005927US

PATIENT
  Sex: Female

DRUGS (4)
  1. LATISSE [Suspect]
     Indication: GROWTH OF EYELASHES
     Dosage: 1 GTT, QHS
  2. BENICAR [Concomitant]
     Dosage: UNK
  3. VITAMIN C                          /00008001/ [Concomitant]
  4. VITAMIN D [Concomitant]

REACTIONS (1)
  - DRUG INEFFECTIVE [None]
